FAERS Safety Report 20983163 (Version 1)
Quarter: 2022Q2

REPORT INFORMATION
  Report Type: Spontaneous
  Country: GB (occurrence: GB)
  Receive Date: 20220620
  Receipt Date: 20220620
  Transmission Date: 20220721
  Serious: Yes (Death)
  Sender: FDA-Public Use
  Company Number: None

PATIENT
  Sex: Female

DRUGS (9)
  1. TRASTUZUMAB DERUXTECAN [Suspect]
     Active Substance: TRASTUZUMAB DERUXTECAN
     Indication: Product used for unknown indication
     Dosage: 5.4 MG/KG, CYCLIC (CYCLE 1)
     Route: 065
     Dates: start: 20210628, end: 20210628
  2. TRASTUZUMAB DERUXTECAN [Suspect]
     Active Substance: TRASTUZUMAB DERUXTECAN
     Dosage: 5.4 MG/KG, CYCLIC (CYCLE 2)
     Route: 065
     Dates: start: 20210726, end: 20210726
  3. TRASTUZUMAB DERUXTECAN [Suspect]
     Active Substance: TRASTUZUMAB DERUXTECAN
     Dosage: 5.4 MG/KG, CYCLIC (CYCLE 3)
     Route: 065
     Dates: start: 20210816, end: 20210816
  4. TRASTUZUMAB DERUXTECAN [Suspect]
     Active Substance: TRASTUZUMAB DERUXTECAN
     Dosage: 5.4 MG/KG, CYCLIC (CYCLE 4)
     Route: 065
     Dates: start: 20210906, end: 20210906
  5. TRASTUZUMAB DERUXTECAN [Suspect]
     Active Substance: TRASTUZUMAB DERUXTECAN
     Dosage: 5.4 MG/KG, CYCLIC (CYCLE 5)
     Route: 065
     Dates: start: 20210927, end: 20210927
  6. DEXAMETHASONE [Concomitant]
     Active Substance: DEXAMETHASONE
     Indication: Product used for unknown indication
     Dosage: 3 MG, QD
     Route: 065
     Dates: start: 20210816
  7. DEXAMETHASONE [Concomitant]
     Active Substance: DEXAMETHASONE
     Dosage: 2 MG, QD
     Route: 065
     Dates: start: 20210906
  8. DEXAMETHASONE [Concomitant]
     Active Substance: DEXAMETHASONE
     Dosage: 0.5 MG, QD
     Dates: start: 20210927
  9. DEXAMETHASONE [Concomitant]
     Active Substance: DEXAMETHASONE
     Dosage: 2 MG, QD
     Route: 065
     Dates: start: 20211007

REACTIONS (7)
  - Death [Fatal]
  - Lethargy [Unknown]
  - Cough [Unknown]
  - Chest pain [Unknown]
  - Pneumonitis [Unknown]
  - Decreased appetite [Unknown]
  - Fatigue [Unknown]
